FAERS Safety Report 9590772 (Version 1)
Quarter: 2013Q4

REPORT INFORMATION
  Report Type: Spontaneous
  Country: US (occurrence: US)
  Receive Date: 20131003
  Receipt Date: 20131003
  Transmission Date: 20140711
  Serious: No
  Sender: FDA-Public Use
  Company Number: US-AMGEN-USASP2012075948

PATIENT
  Age: 61 Year
  Sex: Female
  Weight: 108.84 kg

DRUGS (12)
  1. ENBREL [Suspect]
     Indication: PRODUCT USED FOR UNKNOWN INDICATION
     Dosage: 50 MG, QWK
     Route: 058
  2. PREDNISONE [Concomitant]
     Dosage: 10 MG, UNK
  3. METHOTREXATE [Concomitant]
     Dosage: 2.5 MG, UNK
  4. LYRICA [Concomitant]
     Dosage: 100 MG, UNK
  5. HYDROXYCHLOROQUINE [Concomitant]
     Dosage: 200 MG, UNK
  6. BYSTOLIC [Concomitant]
     Dosage: 10 MG, UNK
  7. POTASSIUM [Concomitant]
     Dosage: 75 MG, UNK
  8. ACIPHEX [Concomitant]
     Dosage: 20 MG, UNK
  9. CALCIUM [Concomitant]
     Dosage: 500 UNK, UNK
  10. MULTIVITAMINS, PLAIN [Concomitant]
     Dosage: UNK
  11. FOLIC ACID [Concomitant]
     Dosage: 5 MG, UNK
  12. ZEGERID                            /00661201/ [Concomitant]
     Dosage: 20-1100 UNK, UNK

REACTIONS (7)
  - Muscular weakness [Unknown]
  - Fatigue [Unknown]
  - Grip strength decreased [Unknown]
  - Tremor [Unknown]
  - Chills [Unknown]
  - Hyperhidrosis [Unknown]
  - Feeling cold [Unknown]
